FAERS Safety Report 9679011 (Version 1)
Quarter: 2013Q4

REPORT INFORMATION
  Report Type: Spontaneous
  Country: US (occurrence: None)
  Receive Date: 20131107
  Receipt Date: 20131107
  Transmission Date: 20140711
  Serious: Yes (Hospitalization)
  Sender: FDA-Public Use
  Company Number: 2013PL000179

PATIENT
  Age: 61 Year
  Sex: Female
  Weight: 69.4 kg

DRUGS (4)
  1. LOTRONEX (ALOSETRON HYDROCHLORIDE) [Suspect]
     Indication: DIARRHOEA
     Route: 048
     Dates: start: 201309, end: 201309
  2. NEXIUM [Concomitant]
  3. PROPRANOLOL [Concomitant]
  4. CREON [Concomitant]

REACTIONS (1)
  - Pancreatitis [None]
